FAERS Safety Report 5794677-6 (Version None)
Quarter: 2008Q2

REPORT INFORMATION
  Report Type: 
  Country: None (occurrence: None)
  Receive Date: 20080626
  Receipt Date: 20080623
  Transmission Date: 20081010
  Serious: Yes (Death, Hospitalization)
  Sender: FDA-Public Use
  Company Number: 2008SP012013

PATIENT
  Age: 58 Year
  Sex: Male

DRUGS (1)
  1. PEG-INTRON [Suspect]
     Indication: HEPATITIS C
     Dosage: 120 MCG; QW; SC
     Route: 058
     Dates: start: 20070214, end: 20080501

REACTIONS (4)
  - ASTHENIA [None]
  - CARDIAC ARREST [None]
  - NOSOCOMIAL INFECTION [None]
  - PNEUMONIA [None]
